FAERS Safety Report 19020368 (Version 2)
Quarter: 2024Q1

REPORT INFORMATION
  Report Type: Report from Study
  Country: GB (occurrence: GB)
  Receive Date: 20210317
  Receipt Date: 20240130
  Transmission Date: 20240410
  Serious: Yes (Other)
  Sender: FDA-Public Use
  Company Number: GB-KYOWAKIRIN-2021BKK004329

PATIENT

DRUGS (2)
  1. BUROSUMAB [Suspect]
     Active Substance: BUROSUMAB
     Indication: Hereditary hypophosphataemic rickets
     Dosage: 10 MG
     Route: 065
  2. BUROSUMAB [Suspect]
     Active Substance: BUROSUMAB
     Dosage: 10 MG, 1X/2 WEEKS (10MG/ML 1ML VIAL 1)
     Route: 058

REACTIONS (4)
  - Intracranial pressure increased [Unknown]
  - Congenital musculoskeletal disorder of skull [Unknown]
  - Erythema infectiosum [Not Recovered/Not Resolved]
  - Pain in extremity [Unknown]
